FAERS Safety Report 19581070 (Version 1)
Quarter: 2021Q3

REPORT INFORMATION
  Report Type: Spontaneous
  Country: US (occurrence: US)
  Receive Date: 20210719
  Receipt Date: 20210719
  Transmission Date: 20211014
  Serious: Yes (Hospitalization)
  Sender: FDA-Public Use
  Company Number: None

PATIENT
  Age: 28 Year
  Sex: Female
  Weight: 94.05 kg

DRUGS (3)
  1. LAMOTRIGINE. [Suspect]
     Active Substance: LAMOTRIGINE
     Indication: BIPOLAR DISORDER
     Route: 048
     Dates: start: 20210702, end: 20210712
  2. CLONIDINE. [Concomitant]
     Active Substance: CLONIDINE
  3. HYDROCODONE?ACETAMINOPHEN [Concomitant]
     Active Substance: ACETAMINOPHEN\HYDROCODONE
     Dates: start: 20210706, end: 20210712

REACTIONS (7)
  - Pyrexia [None]
  - Serum ferritin increased [None]
  - Haemophagocytic lymphohistiocytosis [None]
  - Pancytopenia [None]
  - Rash [None]
  - Transaminases increased [None]
  - Blood fibrinogen decreased [None]

NARRATIVE: CASE EVENT DATE: 20210712
